FAERS Safety Report 11706901 (Version 8)
Quarter: 2016Q4

REPORT INFORMATION
  Report Type: Spontaneous
  Country: US (occurrence: US)
  Receive Date: 20151106
  Receipt Date: 20161019
  Transmission Date: 20170206
  Serious: Yes (Other)
  Sender: FDA-Public Use
  Company Number: US-PFIZER INC-2015358656

PATIENT
  Age: 80 Year
  Sex: Female

DRUGS (6)
  1. IBRANCE [Suspect]
     Active Substance: PALBOCICLIB
     Indication: BREAST CANCER METASTATIC
     Dosage: 125 MG, CYCLIC (DAY 1-DAY 21 EVERY 28 DAYS)
     Route: 048
     Dates: start: 20151007
  2. IBRANCE [Suspect]
     Active Substance: PALBOCICLIB
     Dosage: 100 MG, CYCLIC (DAY 1-DAY 21 EVERY 28 DAYS)
     Route: 048
  3. IBRANCE [Suspect]
     Active Substance: PALBOCICLIB
     Dosage: 75 MG, CYCLIC (DAY 1 - DAY 21 EVERY 28 DAYS)
     Route: 048
  4. IBRANCE [Suspect]
     Active Substance: PALBOCICLIB
     Dosage: 75 MG, CYCLIC (DAYS 1-2 Q28 DAYS)
     Route: 048
     Dates: start: 20151007
  5. IBRANCE [Suspect]
     Active Substance: PALBOCICLIB
     Dosage: 75 MG, CYCLIC (1D-21D-28D)
     Route: 048
     Dates: start: 20151201
  6. IBRANCE [Suspect]
     Active Substance: PALBOCICLIB
     Dosage: 75 MG, CYCLIC (DAY 1 - DAY 21 EVERY 28 DAYS)
     Route: 048

REACTIONS (15)
  - Constipation [Unknown]
  - Gastrooesophageal reflux disease [Unknown]
  - Impaired driving ability [Unknown]
  - Gastric infection [Unknown]
  - Fatigue [Unknown]
  - Neoplasm progression [Unknown]
  - Hypoaesthesia [Unknown]
  - Insomnia [Unknown]
  - Dyspnoea [Unknown]
  - Arthritis [Unknown]
  - Emphysema [Unknown]
  - Nausea [Unknown]
  - Vision blurred [Unknown]
  - Bone pain [Unknown]
  - Weight increased [Unknown]

NARRATIVE: CASE EVENT DATE: 20151021
